FAERS Safety Report 22805221 (Version 2)
Quarter: 2024Q2

REPORT INFORMATION
  Report Type: Report from Study
  Country: SI (occurrence: SI)
  Receive Date: 20230809
  Receipt Date: 20240628
  Transmission Date: 20240716
  Serious: Yes (Disabling, Other)
  Sender: FDA-Public Use
  Company Number: SI-TAKEDA-2023TUS077515

PATIENT
  Sex: Male
  Weight: 78 kg

DRUGS (2)
  1. VEDOLIZUMAB [Suspect]
     Active Substance: VEDOLIZUMAB
     Indication: Inflammatory bowel disease
     Dosage: UNK
     Route: 065
     Dates: start: 20190214, end: 20230330
  2. ACENOCOUMAROL [Concomitant]
     Active Substance: ACENOCOUMAROL
     Indication: Antiphospholipid syndrome
     Dosage: 4 GRAM, QD
     Route: 048
     Dates: start: 20190925

REACTIONS (2)
  - Epilepsy [Unknown]
  - Drug ineffective [Unknown]

NARRATIVE: CASE EVENT DATE: 20221112
